FAERS Safety Report 13656512 (Version 4)
Quarter: 2017Q4

REPORT INFORMATION
  Report Type: Spontaneous
  Country: FR (occurrence: FR)
  Receive Date: 20170615
  Receipt Date: 20171129
  Transmission Date: 20180320
  Serious: Yes (Hospitalization, Other)
  Sender: FDA-Public Use
  Company Number: FR-009507513-1706FRA004625

PATIENT
  Age: 67 Year
  Sex: Female
  Weight: 70 kg

DRUGS (16)
  1. LAMICTAL [Concomitant]
     Active Substance: LAMOTRIGINE
     Indication: AFFECTIVE DISORDER
     Dosage: 100 MG, QD
     Dates: start: 2013
  2. VENTOLINE (ALBUTEROL SULFATE) [Concomitant]
     Active Substance: ALBUTEROL SULFATE
     Indication: CHRONIC OBSTRUCTIVE PULMONARY DISEASE
     Dosage: 1 PUFF, PRN
     Dates: start: 20130917
  3. REBETOL [Suspect]
     Active Substance: RIBAVIRIN
     Indication: HEPATITIS C
     Dosage: 500 MG, BID
     Route: 048
     Dates: start: 20140610, end: 20140805
  4. DERMOVAL (BETAMETHASONE VALERATE) [Concomitant]
     Active Substance: BETAMETHASONE VALERATE
     Indication: PRURITUS
     Dosage: 0.05%, BID
     Dates: start: 2013, end: 201411
  5. DIPROSONE [Concomitant]
     Active Substance: BETAMETHASONE DIPROPIONATE
     Indication: PRURITUS
  6. DEXERYL CREAM [Concomitant]
     Active Substance: GLYCERIN\PARAFFIN
     Indication: SKIN LESION
  7. AERIUS [Concomitant]
     Active Substance: DESLORATADINE
     Indication: PRURITUS
  8. DERMOVAL (BETAMETHASONE VALERATE) [Concomitant]
     Active Substance: BETAMETHASONE VALERATE
     Indication: SKIN LESION
  9. INNOVAIR [Concomitant]
     Active Substance: BECLOMETHASONE DIPROPIONATE\FORMOTEROL
     Indication: ASTHMA
     Dosage: 100/6 MCG, PRN
     Dates: start: 20130917
  10. DIPROSONE [Concomitant]
     Active Substance: BETAMETHASONE DIPROPIONATE
     Indication: SKIN LESION
     Dosage: 0.05%, QD
     Dates: start: 2013, end: 201411
  11. SOFOSBUVIR [Suspect]
     Active Substance: SOFOSBUVIR
     Indication: HEPATITIS C
     Dosage: 400 MG, QD
     Dates: start: 20140610, end: 20141201
  12. DEXERYL CREAM [Concomitant]
     Active Substance: GLYCERIN\PARAFFIN
     Indication: PRURITUS
     Dosage: 1-2 APPLICATIONS, QD
     Dates: start: 2013, end: 201411
  13. DACLATASVIR. [Suspect]
     Active Substance: DACLATASVIR
     Indication: HEPATITIS C
     Dosage: 60 MG, QD
     Dates: start: 20140610, end: 20141201
  14. NAPROXEN. [Concomitant]
     Active Substance: NAPROXEN
     Indication: ARTHRALGIA
     Dosage: 550 (UNITS NOT REPORTED), BID
  15. CO-RENITEC [Concomitant]
     Active Substance: ENALAPRIL\HYDROCHLOROTHIAZIDE
     Indication: HYPERTENSION
     Dosage: 20/12.5, 1 DF, QD
     Dates: start: 2014
  16. AERIUS [Concomitant]
     Active Substance: DESLORATADINE
     Indication: SKIN LESION
     Dosage: 10 (UNITS NOT REPORTED), BID
     Route: 048
     Dates: start: 2013, end: 201411

REACTIONS (9)
  - Subretinal haematoma [Recovered/Resolved with Sequelae]
  - Vitreous haemorrhage [Unknown]
  - Choroidal detachment [Recovered/Resolved with Sequelae]
  - Intraocular haematoma [Recovered/Resolved with Sequelae]
  - Retinal detachment [Recovered/Resolved with Sequelae]
  - Diarrhoea [Recovered/Resolved]
  - Retinal exudates [Recovered/Resolved with Sequelae]
  - Eye haemorrhage [Recovered/Resolved with Sequelae]
  - Pyrexia [Recovered/Resolved]

NARRATIVE: CASE EVENT DATE: 201410
